FAERS Safety Report 12707490 (Version 1)
Quarter: 2016Q3

REPORT INFORMATION
  Report Type: Report from Study
  Country: US (occurrence: US)
  Receive Date: 20160901
  Receipt Date: 20160901
  Transmission Date: 20161109
  Serious: Yes (Other)
  Sender: FDA-Public Use
  Company Number: US-AMGEN-USASL2016112232

PATIENT
  Age: 59 Year
  Sex: Male

DRUGS (1)
  1. ENBREL [Suspect]
     Active Substance: ETANERCEPT
     Indication: RHEUMATOID ARTHRITIS
     Dosage: 50 MG, UNK
     Route: 065
     Dates: start: 20070101

REACTIONS (6)
  - Hip fracture [Unknown]
  - Lower limb fracture [Unknown]
  - Sluggishness [Unknown]
  - Fatigue [Unknown]
  - Surgery [Unknown]
  - Tangentiality [Unknown]

NARRATIVE: CASE EVENT DATE: 2014
